FAERS Safety Report 7639418-2 (Version None)
Quarter: 2011Q3

REPORT INFORMATION
  Report Type: 
  Country: None (occurrence: None)
  Receive Date: 20110727
  Receipt Date: 20110708
  Transmission Date: 20111222
  Serious: Yes (Hospitalization)
  Sender: FDA-Public Use
  Company Number: US-GLAXOSMITHKLINE-A0748287A

PATIENT
  Age: 52 Year
  Sex: Female
  Weight: 81.8 kg

DRUGS (7)
  1. AVANDIA [Suspect]
     Indication: TYPE 2 DIABETES MELLITUS
     Dosage: 8MG PER DAY
     Route: 048
     Dates: start: 20020829, end: 20060609
  2. GLUCOTROL [Concomitant]
  3. PREVACID [Concomitant]
  4. ZYRTEC [Concomitant]
  5. GLUCOPHAGE [Concomitant]
  6. TIAZAC [Concomitant]
  7. GLUCOPHAGE [Concomitant]

REACTIONS (3)
  - CARDIAC DISORDER [None]
  - MYOCARDIAL INFARCTION [None]
  - CORONARY ARTERY DISEASE [None]
